FAERS Safety Report 8972245 (Version 1)
Quarter: 2012Q4

REPORT INFORMATION
  Report Type: 
  Country: US (occurrence: US)
  Receive Date: 20121218
  Receipt Date: 20121218
  Transmission Date: 20130627
  Serious: Yes (Hospitalization)
  Sender: FDA-Public Use
  Company Number: US-GENZYME-POMP-1002487

PATIENT
  Age: 0 Year
  Sex: Female
  Weight: 8.4 kg

DRUGS (5)
  1. MYOZYME [Suspect]
     Indication: GLYCOGEN STORAGE DISEASE TYPE II
     Dosage: 130 mg, q2w
     Route: 042
     Dates: start: 20120509
  2. LASIX [Concomitant]
     Indication: PRODUCT USED FOR UNKNOWN INDICATION
     Dosage: 7 mg, bid
     Route: 065
  3. OMEPRAZOLE [Concomitant]
     Indication: PRODUCT USED FOR UNKNOWN INDICATION
     Dosage: 3.5 mg, bid
     Route: 065
  4. ALBUTEROL [Concomitant]
     Indication: PRODUCT USED FOR UNKNOWN INDICATION
     Dosage: UNK
     Route: 065
  5. FUROSEMIDE [Concomitant]
     Indication: PRODUCT USED FOR UNKNOWN INDICATION
     Dosage: 7 mg, UNK
     Route: 048

REACTIONS (5)
  - Bacterial tracheitis [Recovered/Resolved]
  - Respiratory tract infection viral [Recovered/Resolved]
  - Otitis media [Recovered/Resolved with Sequelae]
  - Pyrexia [Recovered/Resolved]
  - Respiratory distress [Recovered/Resolved]
